FAERS Safety Report 4819001-4 (Version None)
Quarter: 2005Q4

REPORT INFORMATION
  Report Type: 
  Country: None (occurrence: None)
  Receive Date: 20051101
  Receipt Date: 20051101
  Transmission Date: 20060501
  Serious: Yes (Life-Threatening)
  Sender: FDA-Public Use
  Company Number: None

PATIENT
  Age: 28 Year
  Sex: Male
  Weight: 58.9676 kg

DRUGS (2)
  1. WELLBUTRIN XL [Suspect]
     Indication: MAJOR DEPRESSION
     Dates: start: 20051010, end: 20051016
  2. LEXAPRO [Concomitant]

REACTIONS (4)
  - ANAPHYLACTIC REACTION [None]
  - DYSPNOEA [None]
  - SWELLING [None]
  - URTICARIA GENERALISED [None]
